FAERS Safety Report 11101815 (Version 1)
Quarter: 2015Q2

REPORT INFORMATION
  Report Type: Spontaneous
  Country: US (occurrence: US)
  Receive Date: 20150509
  Receipt Date: 20150509
  Transmission Date: 20150821
  Serious: No
  Sender: FDA-Public Use
  Company Number: US-ASTRAZENECA-2015SE41101

PATIENT
  Age: 52 Year
  Sex: Male

DRUGS (3)
  1. CRESTOR [Suspect]
     Active Substance: ROSUVASTATIN CALCIUM
     Dosage: 10 MG, NOT REGULAR
     Route: 048
  2. CRESTOR [Suspect]
     Active Substance: ROSUVASTATIN CALCIUM
     Route: 048
  3. COQ10 [Concomitant]
     Active Substance: UBIDECARENONE
     Route: 065

REACTIONS (2)
  - Off label use [Unknown]
  - Myalgia [Unknown]
